FAERS Safety Report 17731303 (Version 1)
Quarter: 2020Q2

REPORT INFORMATION
  Report Type: Spontaneous
  Country: US (occurrence: US)
  Receive Date: 20200430
  Receipt Date: 20200430
  Transmission Date: 20200714
  Serious: No
  Sender: FDA-Public Use
  Company Number: US-009507513-2004USA008768

PATIENT
  Age: 22 Year
  Sex: Female
  Weight: 55.33 kg

DRUGS (1)
  1. NEXPLANON [Suspect]
     Active Substance: ETONOGESTREL
     Indication: CONTRACEPTION
     Dosage: 1 ROD
     Route: 059
     Dates: start: 201608

REACTIONS (6)
  - Hormone level abnormal [Not Recovered/Not Resolved]
  - Menometrorrhagia [Recovered/Resolved]
  - Incorrect product administration duration [Unknown]
  - Crying [Not Recovered/Not Resolved]
  - Hormone level abnormal [Recovered/Resolved]
  - Menometrorrhagia [Not Recovered/Not Resolved]

NARRATIVE: CASE EVENT DATE: 2018
